FAERS Safety Report 8565136-2 (Version None)
Quarter: 2012Q3

REPORT INFORMATION
  Report Type: 
  Country: None (occurrence: None)
  Receive Date: 20120803
  Receipt Date: 20120730
  Transmission Date: 20120928
  Serious: No
  Sender: FDA-Public Use
  Company Number: US-PFIZER INC-2012172918

PATIENT
  Sex: Female
  Weight: 63.492 kg

DRUGS (9)
  1. HYDROCHLOROTHIAZIDE [Concomitant]
     Indication: HYPERTENSION
     Dosage: UNK
  2. LIPITOR [Suspect]
     Dosage: 40 MG, 2X/DAY
  3. SYNTHROID [Concomitant]
     Indication: HYPOTHYROIDISM
     Dosage: 0.075 MG, UNK
     Dates: start: 19880201
  4. DYAZIDE [Concomitant]
     Indication: HYPERTENSION
     Dosage: 25 MG, QD
     Dates: start: 19940908
  5. ATENOLOL [Concomitant]
     Indication: HYPERTENSION
     Dosage: 100 MG
  6. ATENOLOL [Concomitant]
     Dosage: 50MG AM AND 100MG PM
     Dates: start: 19981001
  7. LIPITOR [Suspect]
     Indication: BLOOD CHOLESTEROL INCREASED
     Dosage: 10 MG, 1X/DAY
     Route: 048
  8. LIPITOR [Suspect]
     Indication: HYPERCHOLESTEROLAEMIA
     Dosage: 20 MG, 1X/DAY
     Route: 048
     Dates: start: 19980301, end: 20120401
  9. LIPITOR [Suspect]
     Dosage: 20 MG, 1X/DAY
     Dates: end: 20120606

REACTIONS (8)
  - BLOOD CHOLESTEROL INCREASED [None]
  - PAIN IN EXTREMITY [None]
  - MUSCULAR WEAKNESS [None]
  - HYPOTONIA [None]
  - MYALGIA [None]
  - MUSCLE DISORDER [None]
  - ARTHRITIS [None]
  - GAIT DISTURBANCE [None]
